FAERS Safety Report 16707299 (Version 1)
Quarter: 2019Q3

REPORT INFORMATION
  Report Type: Spontaneous
  Country: US (occurrence: US)
  Receive Date: 20190815
  Receipt Date: 20190815
  Transmission Date: 20191004
  Serious: Yes (Other)
  Sender: FDA-Public Use
  Company Number: US-PFIZER INC-2019345534

PATIENT
  Age: 86 Year
  Sex: Female
  Weight: 85.26 kg

DRUGS (7)
  1. REVATIO [Suspect]
     Active Substance: SILDENAFIL CITRATE
     Indication: PULMONARY HYPERTENSION
     Dosage: 40 MG, 3X/DAY (20MG TABLETS, TWO BY MOUTH)
     Dates: start: 20190727
  2. TRAMADOL. [Concomitant]
     Active Substance: TRAMADOL
     Indication: BACK PAIN
     Dosage: 50 MG, 3X/DAY PRN
     Dates: start: 201906
  3. TRAMADOL. [Concomitant]
     Active Substance: TRAMADOL
     Indication: MUSCULOSKELETAL PAIN
  4. XOPENEX [Concomitant]
     Active Substance: LEVALBUTEROL HYDROCHLORIDE
     Dosage: UNK
  5. LEVOTHYROXINE. [Concomitant]
     Active Substance: LEVOTHYROXINE
     Indication: HYPOTHYROIDISM
     Dosage: 50 UG, 1X/DAY EVERY MORNING
     Route: 048
  6. GLIPIZIDE. [Concomitant]
     Active Substance: GLIPIZIDE
     Indication: BLOOD GLUCOSE INCREASED
     Dosage: 10 MG IN AM AND 5 MG AT NIGHT BY MOUTH
     Route: 048
  7. VOLTARENE [Concomitant]
     Indication: PAIN
     Dosage: UNK, 3X/DAY (1 % GEL APPLY THREE TIMES A DAY ON SHOULDERS)
     Route: 061
     Dates: start: 20190206

REACTIONS (5)
  - Oedema [Recovering/Resolving]
  - Right ventricular failure [Unknown]
  - Product use issue [Unknown]
  - Off label use [Unknown]
  - Condition aggravated [Unknown]
